FAERS Safety Report 21673027 (Version 1)
Quarter: 2022Q4

REPORT INFORMATION
  Report Type: Spontaneous
  Country: NL (occurrence: NL)
  Receive Date: 20221202
  Receipt Date: 20221202
  Transmission Date: 20230113
  Serious: Yes (Life-Threatening, Hospitalization)
  Sender: FDA-Public Use
  Company Number: NL-LRB-00845704

PATIENT
  Sex: Female
  Weight: 76.4 kg

DRUGS (2)
  1. OLANZAPINE [Suspect]
     Active Substance: OLANZAPINE
     Indication: Personality disorder
     Dosage: 1 TIME PER DAY 1.5 PIECE (=7.5MG)
     Route: 065
     Dates: start: 20160914
  2. LORAZEPAM TABLET 1MG / Brand name not specified [Concomitant]
     Indication: Product used for unknown indication
     Dosage: 1 MILLIGRAM, UNK
     Route: 065

REACTIONS (3)
  - Depressed level of consciousness [Unknown]
  - Electrocardiogram QT interval abnormal [Unknown]
  - Snoring [Unknown]
